FAERS Safety Report 4454772-0 (Version None)
Quarter: 2004Q3

REPORT INFORMATION
  Report Type: 
  Country: None (occurrence: None)
  Receive Date: 20040824
  Receipt Date: 20040701
  Transmission Date: 20050211
  Serious: No
  Sender: FDA-Public Use
  Company Number: SU-2004-002491

PATIENT
  Age: 47 Year
  Sex: Male
  Weight: 90.7194 kg

DRUGS (1)
  1. BENICAR [Suspect]
     Indication: HYPERTENSION
     Dosage: 20 MG QD PO
     Route: 048
     Dates: start: 20040629

REACTIONS (2)
  - DIARRHOEA [None]
  - STOMACH DISCOMFORT [None]
